FAERS Safety Report 12359378 (Version 1)
Quarter: 2016Q2

REPORT INFORMATION
  Report Type: Spontaneous
  Country: IT (occurrence: IT)
  Receive Date: 20160512
  Receipt Date: 20160512
  Transmission Date: 20160815
  Serious: Yes (Other)
  Sender: FDA-Public Use
  Company Number: IT-TEVA-658702ACC

PATIENT
  Age: 44 Year
  Sex: Male

DRUGS (4)
  1. CARBOLITHIUM - 300 MG CAPSULE RIGIDE - TEVA ITALIA S.R.L. [Suspect]
     Active Substance: LITHIUM CARBONATE
     Indication: PRODUCT USED FOR UNKNOWN INDICATION
     Dosage: 600 MG TOTAL
     Dates: start: 20160416, end: 20160416
  2. TRITTICO - AZIENDE CHIMICHE RIUNITE ANGELINI FRANCESCO ACRAF SPA [Suspect]
     Active Substance: TRAZODONE HYDROCHLORIDE
     Indication: PRODUCT USED FOR UNKNOWN INDICATION
     Dosage: 7 DF TOTAL
     Dates: start: 20160416, end: 20160416
  3. TAVOR (LORAZEPAM) [Suspect]
     Active Substance: LORAZEPAM
     Indication: PRODUCT USED FOR UNKNOWN INDICATION
     Dosage: 12.5 MG TOTAL
     Route: 048
     Dates: start: 20160416, end: 20160416
  4. HALDOL [Suspect]
     Active Substance: HALOPERIDOL
     Indication: PRODUCT USED FOR UNKNOWN INDICATION
     Route: 048
     Dates: start: 20160416, end: 20160416

REACTIONS (2)
  - Intentional overdose [None]
  - Self injurious behaviour [Unknown]

NARRATIVE: CASE EVENT DATE: 20160416
